FAERS Safety Report 10390702 (Version 2)
Quarter: 2014Q4

REPORT INFORMATION
  Report Type: Spontaneous
  Country: US (occurrence: US)
  Receive Date: 20140818
  Receipt Date: 20141119
  Transmission Date: 20150528
  Serious: No
  Sender: FDA-Public Use
  Company Number: US-SA-2014SA102624

PATIENT
  Age: 42 Year
  Sex: Female

DRUGS (1)
  1. AUVI-Q [Suspect]
     Active Substance: EPINEPHRINE
     Indication: PRODUCT USED FOR UNKNOWN INDICATION
     Route: 065

REACTIONS (2)
  - Dysphonia [Recovered/Resolved]
  - Sensory loss [Recovered/Resolved]
